FAERS Safety Report 12579194 (Version 1)
Quarter: 2016Q3

REPORT INFORMATION
  Report Type: Spontaneous
  Country: DE (occurrence: DE)
  Receive Date: 20160721
  Receipt Date: 20160721
  Transmission Date: 20161109
  Serious: Yes (Hospitalization, Other)
  Sender: FDA-Public Use
  Company Number: DE-AMGEN-DEUSP2016093219

PATIENT
  Age: 65 Year
  Sex: Female

DRUGS (9)
  1. VITAMIN D                          /00107901/ [Concomitant]
     Active Substance: ERGOCALCIFEROL
  2. TAMOXIFEN [Concomitant]
     Active Substance: TAMOXIFEN
  3. KARVEZIDE [Concomitant]
     Active Substance: HYDROCHLOROTHIAZIDE\IRBESARTAN
  4. METOPROLOL. [Concomitant]
     Active Substance: METOPROLOL
  5. CALCIUM [Concomitant]
     Active Substance: CALCIUM
  6. HYDROMORPHONE [Concomitant]
     Active Substance: HYDROMORPHONE
  7. PANTOPRAZOL [Concomitant]
     Active Substance: PANTOPRAZOLE SODIUM
  8. PROLIA [Suspect]
     Active Substance: DENOSUMAB
     Indication: OSTEOPOROSIS
     Dosage: UNK
     Route: 065
  9. SULTAMICILLIN [Concomitant]
     Active Substance: SULTAMICILLIN

REACTIONS (1)
  - Osteonecrosis of jaw [Recovered/Resolved]
